FAERS Safety Report 5831586-8 (Version None)
Quarter: 2008Q3

REPORT INFORMATION
  Report Type: 
  Country: None (occurrence: None)
  Receive Date: 20080801
  Receipt Date: 20080724
  Transmission Date: 20090109
  Serious: Yes (Other)
  Sender: FDA-Public Use
  Company Number: US-PFIZER INC-2008062143

PATIENT
  Age: 54 Year
  Sex: Female

DRUGS (2)
  1. CABERGOLINE [Suspect]
     Indication: MULTIPLE ENDOCRINE ADENOMATOSIS TYPE I
  2. CABERGOLINE [Suspect]
     Indication: PROLACTINOMA

REACTIONS (2)
  - INTRACRANIAL HYPOTENSION [None]
  - PNEUMOCEPHALUS [None]
